FAERS Safety Report 20035537 (Version 2)
Quarter: 2021Q4

REPORT INFORMATION
  Report Type: Spontaneous
  Country: US (occurrence: US)
  Receive Date: 20211104
  Receipt Date: 20211117
  Transmission Date: 20220303
  Serious: Yes (Death, Other)
  Sender: FDA-Public Use
  Company Number: US-TEVA-2021-US-1972552

PATIENT
  Age: 31 Year
  Sex: Male

DRUGS (16)
  1. CARBOPLATIN [Suspect]
     Active Substance: CARBOPLATIN
     Indication: Non-renal cell carcinoma of kidney
     Dosage: ADMINISTERED 4 CYCLES. ADMINISTERED ON DAY 1.
     Route: 065
  2. CARBOPLATIN [Suspect]
     Active Substance: CARBOPLATIN
     Indication: Metastatic neoplasm
  3. CISPLATIN [Suspect]
     Active Substance: CISPLATIN
     Indication: Non-renal cell carcinoma of kidney
     Dosage: ADMINISTERED 4 CYCLES. ADMINISTERED ON DAY 1.
     Route: 065
  4. CISPLATIN [Suspect]
     Active Substance: CISPLATIN
     Indication: Metastatic neoplasm
  5. DOXORUBICIN [Suspect]
     Active Substance: DOXORUBICIN
     Indication: Non-renal cell carcinoma of kidney
     Dosage: ADMINISTERED 4 CYCLES. ADMINISTERED ON DAY 1.
     Route: 065
  6. DOXORUBICIN [Suspect]
     Active Substance: DOXORUBICIN
     Indication: Metastatic neoplasm
  7. GEMCITABINE [Suspect]
     Active Substance: GEMCITABINE
     Indication: Non-renal cell carcinoma of kidney
     Dosage: ADMINISTERED 4 CYCLES. ADMINISTERED ON DAY 1, 8 AND 15.
     Route: 065
  8. GEMCITABINE [Suspect]
     Active Substance: GEMCITABINE
     Indication: Metastatic neoplasm
  9. PACLITAXEL [Suspect]
     Active Substance: PACLITAXEL
     Indication: Non-renal cell carcinoma of kidney
     Dosage: ADMINISTERED 4 CYCLES. ADMINISTERED ON DAY 1,8 AND 15.
     Route: 065
  10. PACLITAXEL [Suspect]
     Active Substance: PACLITAXEL
     Indication: Metastatic neoplasm
  11. BORTEZOMIB [Suspect]
     Active Substance: BORTEZOMIB
     Indication: Non-renal cell carcinoma of kidney
     Dosage: ADMINISTERED 4 CYCLES. ADMINISTERED ON DAY 1, 4 AND 8.
     Route: 065
  12. BORTEZOMIB [Suspect]
     Active Substance: BORTEZOMIB
     Indication: Metastatic neoplasm
  13. NIVOLUMAB [Suspect]
     Active Substance: NIVOLUMAB
     Indication: Non-renal cell carcinoma of kidney
     Dosage: ADMINISTERED 2 CYCLES.
     Route: 065
  14. NIVOLUMAB [Suspect]
     Active Substance: NIVOLUMAB
     Indication: Metastatic neoplasm
  15. IPILIMUMAB [Suspect]
     Active Substance: IPILIMUMAB
     Indication: Non-renal cell carcinoma of kidney
     Dosage: ADMINISTERED 2 CYCLES.
     Route: 065
  16. IPILIMUMAB [Suspect]
     Active Substance: IPILIMUMAB
     Indication: Metastatic neoplasm

REACTIONS (3)
  - Drug ineffective [Fatal]
  - Febrile neutropenia [Unknown]
  - Off label use [Unknown]
